FAERS Safety Report 23145403 (Version 1)
Quarter: 2023Q4

REPORT INFORMATION
  Report Type: Spontaneous
  Country: US (occurrence: None)
  Receive Date: 20231103
  Receipt Date: 20231103
  Transmission Date: 20240110
  Serious: Yes (Hospitalization)
  Sender: FDA-Public Use
  Company Number: None

PATIENT
  Age: 83 Year
  Sex: Male
  Weight: 56.2 kg

DRUGS (6)
  1. PAXLOVID [Suspect]
     Active Substance: NIRMATRELVIR\RITONAVIR
     Indication: COVID-19
     Dosage: FREQUENCY : TWICE A DAY;?
     Route: 048
     Dates: start: 20231026, end: 20231028
  2. Acetaminophen 500 mg tablets [Concomitant]
     Dates: start: 20231026
  3. Aspirin 81 mg tablets [Concomitant]
  4. Finasteride 5 mg tablets [Concomitant]
  5. Guaifenesin 200 mg oral liquid [Concomitant]
     Dates: end: 20231026
  6. TAMSULOSIN [Concomitant]
     Active Substance: TAMSULOSIN

REACTIONS (6)
  - Fatigue [None]
  - Dyspnoea [None]
  - Hyponatraemia [None]
  - Seizure [None]
  - Confusional state [None]
  - Inappropriate antidiuretic hormone secretion [None]

NARRATIVE: CASE EVENT DATE: 20231028
